FAERS Safety Report 6344326-3 (Version None)
Quarter: 2009Q3

REPORT INFORMATION
  Report Type: 
  Country: None (occurrence: None)
  Receive Date: 20090821
  Receipt Date: 20090424
  Transmission Date: 20100115
  Serious: No
  Sender: FDA-Public Use
  Company Number: 8045369

PATIENT
  Age: 50 Year
  Sex: Female
  Weight: 42.1 kg

DRUGS (3)
  1. CIMZIA [Suspect]
     Indication: CROHN'S DISEASE
     Dosage: 400 MG /M SC
     Route: 058
     Dates: start: 20080701
  2. METHOTREXATE [Concomitant]
  3. ENTOCORT EC [Concomitant]

REACTIONS (3)
  - CROHN'S DISEASE [None]
  - DRUG INEFFECTIVE [None]
  - OEDEMA PERIPHERAL [None]
